FAERS Safety Report 4463198-5 (Version None)
Quarter: 2004Q3

REPORT INFORMATION
  Report Type: 
  Country: None (occurrence: None)
  Receive Date: 20040930
  Receipt Date: 20020527
  Transmission Date: 20050211
  Serious: Yes (Hospitalization)
  Sender: FDA-Public Use
  Company Number: NL-ROCHE-313999

PATIENT
  Age: 15 Year
  Sex: Male
  Weight: 49.6 kg

DRUGS (20)
  1. CELLCEPT [Suspect]
     Route: 048
  2. PREDNISONE [Suspect]
     Dosage: REPORTED AS 1 X 7.5.
     Route: 065
     Dates: start: 20020615
  3. CSA [Suspect]
     Route: 065
     Dates: start: 20020615
  4. CO-TRIMOXAZOL [Concomitant]
     Dates: start: 20020115
  5. TOBISPRAY [Concomitant]
     Dosage: USED 3 TIMES IN 2001.
     Dates: start: 20010615
  6. CIPROXIN [Concomitant]
     Dates: start: 20011015
  7. BROXIL [Concomitant]
     Dates: start: 20011215, end: 20020315
  8. HYDROCHLOROTHIAZIDE [Concomitant]
  9. ETALPHA [Concomitant]
  10. DAGRAVIT TOTAL [Concomitant]
  11. FOLIC ACID [Concomitant]
  12. OXYBUTYNINE [Concomitant]
  13. PULMOZYME [Concomitant]
  14. NASACORT [Concomitant]
  15. LEGENDAL [Concomitant]
  16. IMPORTAL [Concomitant]
  17. BISACODYL [Concomitant]
  18. UNKNOWN DRUG [Concomitant]
     Dosage: REPORTED AS COUGH MIXTURE.
  19. MULTI-VITAMIN [Concomitant]
  20. UNKNOWN DRUG [Concomitant]
     Dosage: DRUG NAME: CASCADE. NOT REGISTERED IN THE NETHERLANDS, POSSIBLY SOME OTC-DRUG.

REACTIONS (13)
  - BORDETELLA INFECTION [None]
  - BRONCHIECTASIS [None]
  - LUNG DISORDER [None]
  - LUNG INFECTION [None]
  - OBSTRUCTIVE AIRWAYS DISORDER [None]
  - OPPORTUNISTIC INFECTION [None]
  - PSEUDOMONAS INFECTION [None]
  - RESPIRATORY TRACT INFECTION [None]
  - RHINOVIRUS INFECTION [None]
  - SECONDARY IMMUNODEFICIENCY [None]
  - SPUTUM CULTURE POSITIVE [None]
  - STREPTOCOCCAL INFECTION [None]
  - VARICELLA [None]
